FAERS Safety Report 8150796 (Version 3)
Quarter: 2014Q1

REPORT INFORMATION
  Report Type: Spontaneous
  Country: US (occurrence: US)
  Receive Date: 20110922
  Receipt Date: 20140328
  Transmission Date: 20141002
  Serious: Yes (Life-Threatening, Hospitalization, Other)
  Sender: FDA-Public Use
  Company Number: US-ASTRAZENECA-2011SE22926

PATIENT
  Age: 44 Year
  Sex: Female
  Weight: 78 kg

DRUGS (19)
  1. SEROQUEL [Suspect]
     Indication: DEPRESSION
     Route: 048
     Dates: start: 201011
  2. SEROQUEL [Suspect]
     Indication: BIPOLAR DISORDER
     Route: 048
     Dates: start: 201011
  3. SEROQUEL [Suspect]
     Indication: SCHIZOPHRENIA
     Route: 048
     Dates: start: 201011
  4. SEROQUEL [Suspect]
     Indication: DEPRESSION
     Route: 048
     Dates: start: 201011
  5. SEROQUEL [Suspect]
     Indication: BIPOLAR DISORDER
     Route: 048
     Dates: start: 201011
  6. SEROQUEL [Suspect]
     Indication: SCHIZOPHRENIA
     Route: 048
     Dates: start: 201011
  7. SEROQUEL [Suspect]
     Indication: DEPRESSION
     Route: 048
  8. SEROQUEL [Suspect]
     Indication: BIPOLAR DISORDER
     Route: 048
  9. SEROQUEL [Suspect]
     Indication: SCHIZOPHRENIA
     Route: 048
  10. HALDOL [Suspect]
     Route: 065
  11. CELEBREX [Concomitant]
     Indication: FIBROMYALGIA
     Dosage: DAILY
     Route: 048
  12. LYRICA [Concomitant]
     Indication: FIBROMYALGIA
     Dosage: DAILY
     Route: 048
  13. XANAX [Concomitant]
     Indication: SLEEP DISORDER
     Dosage: 0.5 MG 1 OR 1 1/2 HS
     Route: 048
  14. XANAX [Concomitant]
     Indication: NERVOUS SYSTEM DISORDER
     Dosage: 0.5 MG 1 OR 1 1/2 HS
     Route: 048
  15. XANAX [Concomitant]
     Indication: SLEEP DISORDER
     Dosage: TWO TIMES A DAY AS NEEDED
     Route: 048
  16. XANAX [Concomitant]
     Indication: NERVOUS SYSTEM DISORDER
     Dosage: TWO TIMES A DAY AS NEEDED
     Route: 048
  17. LORTAB [Concomitant]
     Route: 048
  18. VISTARIL [Concomitant]
     Route: 048
  19. TRAMADOL [Concomitant]
     Dosage: TWO TIMES A DAY AS NEEDED
     Route: 048

REACTIONS (13)
  - Self injurious behaviour [Unknown]
  - Bronchitis [Not Recovered/Not Resolved]
  - Schizophrenia [Unknown]
  - Malaise [Unknown]
  - Feeling abnormal [Unknown]
  - Asthenia [Unknown]
  - Paranoia [Unknown]
  - Tremor [Unknown]
  - Restlessness [Unknown]
  - Hallucination, auditory [Unknown]
  - Psychotic disorder [Unknown]
  - Intentional drug misuse [Unknown]
  - Drug dose omission [Unknown]
